FAERS Safety Report 11775108 (Version 2)
Quarter: 2015Q4

REPORT INFORMATION
  Report Type: Spontaneous
  Country: CZ (occurrence: CZ)
  Receive Date: 20151124
  Receipt Date: 20151207
  Transmission Date: 20160304
  Serious: Yes (Other)
  Sender: FDA-Public Use
  Company Number: ALCN2015CZ007312

PATIENT

DRUGS (4)
  1. BETADINE [Concomitant]
     Active Substance: POVIDONE-IODINE
     Indication: PRODUCT USED FOR UNKNOWN INDICATION
     Route: 065
  2. BENOX [Concomitant]
     Indication: ANAESTHESIA
     Route: 061
  3. VIGAMOX [Suspect]
     Active Substance: MOXIFLOXACIN HYDROCHLORIDE
     Indication: PREOPERATIVE CARE
     Dosage: 1 GTT, 30 MINUTES PRIOR TO PROCEDURE
     Route: 031
  4. MACUGEN [Concomitant]
     Active Substance: PEGAPTANIB SODIUM
     Route: 031

REACTIONS (2)
  - Endophthalmitis [Unknown]
  - Off label use [Unknown]
